FAERS Safety Report 8617227-5 (Version None)
Quarter: 2012Q3

REPORT INFORMATION
  Report Type: 
  Country: None (occurrence: None)
  Receive Date: 20120823
  Receipt Date: 20120814
  Transmission Date: 20120928
  Serious: Yes (Hospitalization, Disabling, Other)
  Sender: FDA-Public Use
  Company Number: US-ASTRAZENECA-2011SE36354

PATIENT
  Age: 44 Year
  Sex: Female
  Weight: 63.5 kg

DRUGS (12)
  1. SEROQUEL [Suspect]
     Route: 048
     Dates: start: 20080501
  2. SEROQUEL [Suspect]
     Route: 048
     Dates: start: 20080501
  3. SEROQUEL [Suspect]
     Route: 048
     Dates: start: 20080501
  4. SEROQUEL [Suspect]
     Indication: MOOD ALTERED
     Route: 048
  5. SEROQUEL [Suspect]
     Route: 048
     Dates: start: 20080501
  6. SEROQUEL [Suspect]
     Route: 048
     Dates: start: 20080501
  7. SEROQUEL [Suspect]
     Indication: SCHIZOAFFECTIVE DISORDER
     Route: 048
  8. SEROQUEL [Suspect]
     Indication: AFFECT LABILITY
     Route: 048
  9. SEROQUEL [Suspect]
     Route: 048
     Dates: start: 20080501
  10. SEROQUEL [Suspect]
     Indication: DEPRESSIVE SYMPTOM
     Route: 048
  11. SEROQUEL [Suspect]
     Indication: PSYCHOTIC BEHAVIOUR
     Route: 048
  12. SEROQUEL [Suspect]
     Indication: PSYCHOTIC DISORDER
     Route: 048

REACTIONS (6)
  - DISEASE RECURRENCE [None]
  - ABNORMAL BEHAVIOUR [None]
  - POSTPARTUM DEPRESSION [None]
  - SCHIZOPHRENIA, PARANOID TYPE [None]
  - SOMATOFORM DISORDER [None]
  - DRUG DOSE OMISSION [None]
